FAERS Safety Report 13850145 (Version 2)
Quarter: 2017Q3

REPORT INFORMATION
  Report Type: Spontaneous
  Country: US (occurrence: US)
  Receive Date: 20170809
  Receipt Date: 20170911
  Transmission Date: 20171127
  Serious: Yes (Hospitalization, Other)
  Sender: FDA-Public Use
  Company Number: US-ASTRAZENECA-2017SE80543

PATIENT
  Age: 66 Year
  Sex: Female

DRUGS (5)
  1. FASLODEX [Suspect]
     Active Substance: FULVESTRANT
     Dosage: 250.0MG UNKNOWN
     Route: 030
     Dates: start: 20170524
  2. FASLODEX [Suspect]
     Active Substance: FULVESTRANT
     Dosage: 250.0MG UNKNOWN
     Route: 030
     Dates: start: 20170517
  3. IBRANCE [Suspect]
     Active Substance: PALBOCICLIB
     Indication: BREAST CANCER FEMALE
     Dosage: 125.0MG UNKNOWN
     Route: 048
     Dates: start: 20170517
  4. IBRANCE [Suspect]
     Active Substance: PALBOCICLIB
     Indication: BREAST CANCER FEMALE
     Dosage: 125.0MG UNKNOWN
     Route: 048
     Dates: start: 20170524
  5. IBRANCE [Suspect]
     Active Substance: PALBOCICLIB
     Indication: BREAST CANCER FEMALE
     Dosage: 125.0MG UNKNOWN

REACTIONS (14)
  - Ear pain [Unknown]
  - Depression [Unknown]
  - Oropharyngeal pain [Unknown]
  - Stomatitis [Unknown]
  - Malignant neoplasm progression [Unknown]
  - Memory impairment [Unknown]
  - Hyperhidrosis [Unknown]
  - Fatigue [Unknown]
  - Alopecia [Unknown]
  - Abdominal discomfort [Unknown]
  - Constipation [Unknown]
  - Dehydration [Unknown]
  - Influenza like illness [Unknown]
  - Oral herpes [Unknown]
